FAERS Safety Report 18787220 (Version 1)
Quarter: 2021Q1

REPORT INFORMATION
  Report Type: Spontaneous
  Country: US (occurrence: US)
  Receive Date: 20210125
  Receipt Date: 20210125
  Transmission Date: 20210419
  Serious: No
  Sender: FDA-Public Use
  Company Number: None

PATIENT
  Age: 82 Year
  Sex: Male
  Weight: 117 kg

DRUGS (1)
  1. BAMLANIVIMAB (EUA) (BAMLANIVIMAB) (EUA) [Suspect]
     Active Substance: BAMLANIVIMAB\ETESEVIMAB
     Indication: COVID-19
     Route: 042
     Dates: start: 20210123, end: 20210123

REACTIONS (2)
  - Musculoskeletal disorder [None]
  - Back pain [None]

NARRATIVE: CASE EVENT DATE: 20210123
